FAERS Safety Report 9140836 (Version 3)
Quarter: 2013Q2

REPORT INFORMATION
  Report Type: Spontaneous
  Country: US (occurrence: US)
  Receive Date: 20130305
  Receipt Date: 20130403
  Transmission Date: 20140414
  Serious: Yes (Hospitalization, Disabling, Other)
  Sender: FDA-Public Use
  Company Number: US-009507513-1303USA000845

PATIENT
  Sex: Female
  Weight: 84.35 kg

DRUGS (2)
  1. NUVARING [Suspect]
     Indication: CONTRACEPTION
     Dosage: UNK
     Route: 067
     Dates: start: 20101006, end: 201012
  2. NUVARING [Suspect]
     Indication: MENSTRUATION IRREGULAR

REACTIONS (6)
  - Atelectasis [Unknown]
  - Pulmonary embolism [Recovering/Resolving]
  - Ligament sprain [Unknown]
  - Anaemia [Unknown]
  - Cyst rupture [Unknown]
  - Thrombophlebitis [Unknown]
